FAERS Safety Report 9821090 (Version 1)
Quarter: 2013Q4

REPORT INFORMATION
  Report Type: Spontaneous
  Country: US (occurrence: None)
  Receive Date: 20131028
  Receipt Date: 20131028
  Transmission Date: 20140711
  Serious: Yes (Other)
  Sender: FDA-Public Use
  Company Number: 2013US001716

PATIENT
  Age: 52 Year
  Sex: Male
  Weight: 82 kg

DRUGS (6)
  1. ICLUSIG (PONATINIB) TABLET, 45 MG [Suspect]
     Indication: ACUTE LYMPHOCYTIC LEUKAEMIA
     Dosage: 45 MG, QD, ORAL
     Route: 048
     Dates: start: 20130122, end: 20130409
  2. CRESTOR (ROSUVASTATIN CALCIUM) [Concomitant]
  3. ASPIRIN (ASPIRIN) [Concomitant]
  4. CALCIUM (CALCIUM) [Concomitant]
  5. NOVOLOG (INSULIN ASPART) [Concomitant]
  6. LANTUS (INSULIN GLARGINE) [Concomitant]

REACTIONS (2)
  - Disease progression [None]
  - Drug ineffective [None]
